FAERS Safety Report 6248720-0 (Version None)
Quarter: 2009Q2

REPORT INFORMATION
  Report Type: 
  Country: None (occurrence: None)
  Receive Date: 20090625
  Receipt Date: 20090625
  Transmission Date: 20091009
  Serious: Yes (Death)
  Sender: FDA-Public Use
  Company Number: None

PATIENT
  Sex: Female
  Weight: 85.7298 kg

DRUGS (6)
  1. NILOTINIB [Suspect]
     Indication: GASTROINTESTINAL STROMAL TUMOUR
     Dosage: 400MG PO BID X 28 DAYS
     Route: 048
     Dates: start: 20090611, end: 20090622
  2. DEXAMETHASONE [Concomitant]
  3. OXYCODONE [Concomitant]
  4. OXYCONTIN [Concomitant]
  5. HYDROMORPHONE [Concomitant]
  6. NILOTINIB [Concomitant]

REACTIONS (8)
  - APNOEA [None]
  - CARDIO-RESPIRATORY ARREST [None]
  - DRUG INEFFECTIVE [None]
  - ELECTROCARDIOGRAM ST SEGMENT ELEVATION [None]
  - HYPOVENTILATION [None]
  - LOSS OF CONSCIOUSNESS [None]
  - MIOSIS [None]
  - VENTRICULAR EXTRASYSTOLES [None]
